FAERS Safety Report 21376734 (Version 1)
Quarter: 2022Q3

REPORT INFORMATION
  Report Type: Spontaneous
  Country: US (occurrence: None)
  Receive Date: 20220924
  Receipt Date: 20220924
  Transmission Date: 20221027
  Serious: Yes (Other)
  Sender: FDA-Public Use
  Company Number: None

PATIENT
  Age: 26 Year
  Sex: Female
  Weight: 69.3 kg

DRUGS (1)
  1. DEXTROAMPHETAMINE [Suspect]
     Active Substance: DEXTROAMPHETAMINE
     Indication: Attention deficit hyperactivity disorder
     Dates: start: 20220727, end: 20220912

REACTIONS (6)
  - Palpitations [None]
  - Chest pain [None]
  - Anxiety [None]
  - Abdominal pain [None]
  - Lethargy [None]
  - Irritability [None]

NARRATIVE: CASE EVENT DATE: 20220903
